FAERS Safety Report 13507344 (Version 2)
Quarter: 2017Q2

REPORT INFORMATION
  Report Type: Report from Study
  Country: ZA (occurrence: ZA)
  Receive Date: 20170503
  Receipt Date: 20170510
  Transmission Date: 20170830
  Serious: Yes (Hospitalization)
  Sender: FDA-Public Use
  Company Number: ZA-ASTRAZENECA-2017SE28701

PATIENT
  Age: 23554 Day
  Sex: Male

DRUGS (20)
  1. EPANOVA [Suspect]
     Active Substance: OMEGA-3-CARBOXYLIC ACIDS
     Indication: HYPERTRIGLYCERIDAEMIA
     Route: 048
     Dates: start: 20151105, end: 20151215
  2. AMITRIPTYLINE [Concomitant]
     Active Substance: AMITRIPTYLINE
     Indication: ANKYLOSING SPONDYLITIS
     Route: 048
     Dates: start: 2013, end: 20161111
  3. EPANOVA [Suspect]
     Active Substance: OMEGA-3-CARBOXYLIC ACIDS
     Indication: HYPERTRIGLYCERIDAEMIA
     Route: 048
     Dates: start: 20170130
  4. SIMVASTATIN. [Suspect]
     Active Substance: SIMVASTATIN
     Indication: HYPERCHOLESTEROLAEMIA
     Route: 048
     Dates: start: 201509, end: 20160915
  5. SULPHASALAZINE [Concomitant]
     Active Substance: SULFASALAZINE
     Indication: ANKYLOSING SPONDYLITIS
     Dosage: 1500.0MG AS REQUIRED
     Route: 048
     Dates: start: 2012, end: 20161111
  6. TRAMADOL. [Concomitant]
     Active Substance: TRAMADOL
     Indication: ANKYLOSING SPONDYLITIS
     Dosage: 50.0MG AS REQUIRED
     Route: 048
     Dates: start: 2013, end: 20161111
  7. PARACETAMOL [Concomitant]
     Active Substance: ACETAMINOPHEN
     Indication: ANKYLOSING SPONDYLITIS
     Dosage: 1000.0MG AS REQUIRED
     Route: 048
     Dates: start: 2013
  8. RIDAQ [Concomitant]
     Active Substance: HYDROCHLOROTHIAZIDE
     Indication: HYPERTENSION
     Route: 048
     Dates: start: 20160505, end: 20161111
  9. SIMVASTATIN. [Suspect]
     Active Substance: SIMVASTATIN
     Indication: HYPERCHOLESTEROLAEMIA
     Route: 048
     Dates: start: 20160916, end: 20161111
  10. PHARMAPRESS [Concomitant]
     Indication: HYPERTENSION
     Route: 048
     Dates: start: 2008
  11. ASPRIN [Concomitant]
     Active Substance: ASPIRIN
     Indication: CARDIOVASCULAR EVENT PROPHYLAXIS
     Route: 048
     Dates: start: 2013, end: 20161111
  12. VOLTAREN [Concomitant]
     Active Substance: DICLOFENAC SODIUM
     Indication: ANKYLOSING SPONDYLITIS
     Dosage: 50.0MG AS REQUIRED
     Route: 048
     Dates: start: 2012, end: 20161111
  13. AVASTIN [Concomitant]
     Active Substance: BEVACIZUMAB
     Indication: MACULAR DEGENERATION
     Dosage: 1.25 ML TWO MONTHLY
     Route: 031
     Dates: start: 20160128, end: 201605
  14. LANSOLOC [Concomitant]
     Indication: PROPHYLAXIS
     Route: 048
     Dates: start: 2014, end: 20161111
  15. STUGERON [Concomitant]
     Active Substance: CINNARIZINE
     Indication: VERTIGO
     Dosage: 25.0MG AS REQUIRED
     Route: 048
     Dates: start: 201607
  16. SIMVASTATIN. [Suspect]
     Active Substance: SIMVASTATIN
     Indication: HYPERCHOLESTEROLAEMIA
     Route: 048
     Dates: start: 20161112
  17. AVASTIN [Concomitant]
     Active Substance: BEVACIZUMAB
     Indication: MACULAR DEGENERATION
     Route: 031
     Dates: start: 2010, end: 20160128
  18. AVASTIN [Concomitant]
     Active Substance: BEVACIZUMAB
     Indication: MACULAR DEGENERATION
     Route: 031
     Dates: start: 201605
  19. EPANOVA [Suspect]
     Active Substance: OMEGA-3-CARBOXYLIC ACIDS
     Indication: HYPERTRIGLYCERIDAEMIA
     Route: 048
     Dates: start: 20151218, end: 20161110
  20. SIMVASTATIN. [Suspect]
     Active Substance: SIMVASTATIN
     Indication: HYPERCHOLESTEROLAEMIA
     Route: 048
     Dates: start: 2013, end: 201509

REACTIONS (1)
  - Epistaxis [Recovered/Resolved with Sequelae]

NARRATIVE: CASE EVENT DATE: 20161108
